FAERS Safety Report 5108043-X (Version None)
Quarter: 2006Q3

REPORT INFORMATION
  Report Type: 
  Country: None (occurrence: None)
  Receive Date: 20060919
  Receipt Date: 20060911
  Transmission Date: 20061208
  Serious: Yes (Other)
  Sender: FDA-Public Use
  Company Number: 2006UW17992

PATIENT
  Age: 58 Year
  Sex: Male

DRUGS (4)
  1. IRESSA [Suspect]
     Indication: OESOPHAGEAL CARCINOMA
     Route: 048
     Dates: start: 20060116, end: 20060817
  2. ATENOLOL [Concomitant]
     Indication: HYPERTENSION
     Route: 048
  3. NOVOLIN [Concomitant]
     Indication: DIABETES MELLITUS
     Route: 058
  4. ZOLOFT [Concomitant]
     Indication: DEPRESSION
     Route: 048

REACTIONS (3)
  - MACULAR OEDEMA [None]
  - RETINAL VEIN OCCLUSION [None]
  - RETINAL VEIN THROMBOSIS [None]
